FAERS Safety Report 5357134-7 (Version None)
Quarter: 2007Q2

REPORT INFORMATION
  Report Type: 
  Country: None (occurrence: None)
  Receive Date: 20070614
  Receipt Date: 20070605
  Transmission Date: 20071010
  Serious: Yes (Hospitalization)
  Sender: FDA-Public Use
  Company Number: AU-ROCHE-500616

PATIENT
  Sex: Female

DRUGS (6)
  1. CEFTRIAXONE SODIUM [Suspect]
     Indication: DRUG USE FOR UNKNOWN INDICATION
     Dosage: SHORT TERM.
     Route: 065
  2. ROXITHROMYCIN [Suspect]
     Indication: DRUG USE FOR UNKNOWN INDICATION
     Dosage: SHORT TERM.
     Route: 065
  3. LIPITOR [Suspect]
     Indication: DRUG USE FOR UNKNOWN INDICATION
     Dosage: LONG THERM REPORTED AS LONG TERM THERAPY
     Route: 065
  4. MOXIFLOXACIN HCL [Suspect]
     Indication: DRUG USE FOR UNKNOWN INDICATION
     Dosage: SHORT TERM.
     Route: 065
  5. DILTIAZEM HYDROCHLORIDE [Concomitant]
  6. DIGOXIN [Concomitant]

REACTIONS (2)
  - LIVER FUNCTION TEST ABNORMAL [None]
  - PNEUMONIA [None]
